FAERS Safety Report 7994093-2 (Version None)
Quarter: 2011Q4

REPORT INFORMATION
  Report Type: 
  Country: None (occurrence: None)
  Receive Date: 20111220
  Receipt Date: 20111202
  Transmission Date: 20120403
  Serious: Yes (Hospitalization, Other)
  Sender: FDA-Public Use
  Company Number: CA-JNJFOC-20110501420

PATIENT
  Sex: Female
  Weight: 45 kg

DRUGS (3)
  1. HYDROMORPHONE HCL [Concomitant]
  2. REMICADE [Suspect]
     Indication: RHEUMATOID ARTHRITIS
     Route: 042
     Dates: start: 20060101
  3. TYLENOL 3 WITH CODEINE [Concomitant]

REACTIONS (4)
  - MALAISE [None]
  - SURGERY [None]
  - HOSPITALISATION [None]
  - DIARRHOEA [None]
